FAERS Safety Report 5487425-0 (Version None)
Quarter: 2007Q4

REPORT INFORMATION
  Report Type: 
  Country: None (occurrence: None)
  Receive Date: 20071016
  Receipt Date: 20071004
  Transmission Date: 20080405
  Serious: Yes (Other)
  Sender: FDA-Public Use
  Company Number: US-PFIZER INC-2007073706

PATIENT
  Sex: Female
  Weight: 68 kg

DRUGS (4)
  1. CHANTIX [Suspect]
     Indication: SMOKING CESSATION THERAPY
     Dates: start: 20070820, end: 20070801
  2. ENALAPRIL MALEATE [Concomitant]
     Indication: HYPERTENSION
  3. TRAZODONE HCL [Concomitant]
     Indication: DEPRESSION
  4. TRAZODONE HCL [Concomitant]
     Indication: SLEEP DISORDER

REACTIONS (3)
  - DYSPNOEA [None]
  - OESOPHAGEAL OBSTRUCTION [None]
  - PANIC REACTION [None]
